FAERS Safety Report 8581520-5 (Version None)
Quarter: 2012Q3

REPORT INFORMATION
  Report Type: 
  Country: None (occurrence: None)
  Receive Date: 20120809
  Receipt Date: 20120803
  Transmission Date: 20120928
  Serious: Yes (Hospitalization)
  Sender: FDA-Public Use
  Company Number: US-JNJFOC-20120802517

PATIENT
  Sex: Female
  Weight: 77.11 kg

DRUGS (8)
  1. MELOXICAM [Concomitant]
     Route: 048
  2. DIOVAN HCT [Concomitant]
     Dosage: (160/25 MG) DAILY
     Route: 048
  3. LOVASTATIN [Concomitant]
     Route: 048
  4. TRAZODONE HYDROCHLORIDE [Concomitant]
     Route: 048
  5. XARELTO [Suspect]
     Indication: KNEE OPERATION
     Route: 048
     Dates: start: 20120701, end: 20120701
  6. PRILOSEC [Concomitant]
     Route: 048
  7. XARELTO [Suspect]
     Indication: THROMBOSIS PROPHYLAXIS
     Route: 048
     Dates: start: 20120701, end: 20120701
  8. AMLODIPINE [Concomitant]
     Route: 048

REACTIONS (2)
  - MUSCULOSKELETAL STIFFNESS [None]
  - PULMONARY EMBOLISM [None]
